FAERS Safety Report 8906434 (Version 1)
Quarter: 2012Q4

REPORT INFORMATION
  Report Type: Spontaneous
  Country: US (occurrence: None)
  Receive Date: 20121112
  Receipt Date: 20121112
  Transmission Date: 20130627
  Serious: Yes (Disabling, Other)
  Sender: FDA-Public Use
  Company Number: None

PATIENT
  Age: 34 Year
  Sex: Male
  Weight: 68.2 kg

DRUGS (2)
  1. LOTRISONE [Suspect]
     Dosage: 90 grams total 2x/day topical
     Route: 061
     Dates: start: 20120401
  2. LOTRISONE [Suspect]
     Dates: start: 20120601

REACTIONS (8)
  - Skin striae [None]
  - Skin atrophy [None]
  - Burning sensation [None]
  - Inflammation [None]
  - Erythema [None]
  - Steroid withdrawal syndrome [None]
  - Mental disorder [None]
  - Economic problem [None]
